FAERS Safety Report 14925279 (Version 1)
Quarter: 2018Q2

REPORT INFORMATION
  Report Type: Report from Study
  Country: GB (occurrence: GB)
  Receive Date: 20180522
  Receipt Date: 20180522
  Transmission Date: 20180711
  Serious: Yes (Death)
  Sender: FDA-Public Use
  Company Number: GB-PFIZER INC-2018203650

PATIENT

DRUGS (4)
  1. ETOPOSIDE. [Suspect]
     Active Substance: ETOPOSIDE
     Dosage: UNK (HIGH DOSE)
  2. MELPHALAN. [Suspect]
     Active Substance: MELPHALAN
     Dosage: UNK (HIGH DOSE)
  3. CARMUSTINE [Suspect]
     Active Substance: CARMUSTINE
     Dosage: 300 MG/M2, UNK (DAY -6) (HIGH DOSE)
  4. CYTARABINE. [Suspect]
     Active Substance: CYTARABINE
     Dosage: UNK (HIGH DOSE)

REACTIONS (1)
  - Death [Fatal]
